FAERS Safety Report 13058005 (Version 1)
Quarter: 2016Q4

REPORT INFORMATION
  Report Type: Spontaneous
  Country: GR (occurrence: GR)
  Receive Date: 20161223
  Receipt Date: 20161223
  Transmission Date: 20170207
  Serious: Yes (Hospitalization)
  Sender: FDA-Public Use
  Company Number: PHHY2016GR174740

PATIENT
  Age: 72 Year
  Sex: Male

DRUGS (1)
  1. FARYDAK [Suspect]
     Active Substance: PANOBINOSTAT
     Indication: PLASMA CELL MYELOMA
     Dosage: 15 MG, QW3
     Route: 065
     Dates: start: 201603

REACTIONS (2)
  - Pulmonary oedema [Unknown]
  - Lung infection [Unknown]
